FAERS Safety Report 4514651-7 (Version None)
Quarter: 2004Q4

REPORT INFORMATION
  Report Type: 
  Country: None (occurrence: None)
  Receive Date: 20041126
  Receipt Date: 20041111
  Transmission Date: 20050328
  Serious: Yes (Life-Threatening)
  Sender: FDA-Public Use
  Company Number: 2004BL007897

PATIENT
  Sex: Female

DRUGS (1)
  1. TROPICAMIDE [Suspect]
     Dosage: OPHTHALMIC
     Route: 047

REACTIONS (1)
  - ANAPHYLACTIC REACTION [None]
